FAERS Safety Report 14152368 (Version 2)
Quarter: 2017Q4

REPORT INFORMATION
  Report Type: Report from Study
  Country: US (occurrence: US)
  Receive Date: 20171102
  Receipt Date: 20171109
  Transmission Date: 20180321
  Serious: Yes (Hospitalization, Other)
  Sender: FDA-Public Use
  Company Number: US-GILEAD-2017-0302480

PATIENT
  Age: 68 Year
  Sex: Female
  Weight: 87 kg

DRUGS (8)
  1. ASPIRIN                            /00002701/ [Concomitant]
     Active Substance: ASPIRIN
  2. ALLOPURINOL. [Concomitant]
     Active Substance: ALLOPURINOL
  3. AMBRISENTAN [Suspect]
     Active Substance: AMBRISENTAN
     Indication: PULMONARY HYPERTENSION
     Dosage: 10 MG, QD
     Route: 065
  4. ROBAXIN [Concomitant]
     Active Substance: METHOCARBAMOL
  5. BRILINTA [Concomitant]
     Active Substance: TICAGRELOR
  6. VITAMINS NOS [Concomitant]
     Active Substance: VITAMINS
  7. LASIX [Concomitant]
     Active Substance: FUROSEMIDE
  8. MINERALS NOS [Concomitant]
     Active Substance: MINERALS

REACTIONS (1)
  - Myocardial infarction [Recovered/Resolved]

NARRATIVE: CASE EVENT DATE: 20171001
